FAERS Safety Report 11423385 (Version 1)
Quarter: 2015Q3

REPORT INFORMATION
  Report Type: Spontaneous
  Country: US (occurrence: None)
  Receive Date: 20150826
  Receipt Date: 20150826
  Transmission Date: 20151125
  Serious: No
  Sender: FDA-Public Use
  Company Number: None

PATIENT
  Age: 41 Year
  Sex: Male
  Weight: 89.36 kg

DRUGS (10)
  1. MEGAMAN VITAMINS [Concomitant]
  2. OMEPRAZOLE 20 MG [Suspect]
     Active Substance: OMEPRAZOLE
     Indication: ABDOMINAL DISCOMFORT
     Dosage: 6-9 MONTHS
     Route: 048
  3. NASONEX [Concomitant]
     Active Substance: MOMETASONE FUROATE
  4. TYLENOL [Concomitant]
     Active Substance: ACETAMINOPHEN
  5. TUMS [Concomitant]
     Active Substance: CALCIUM CARBONATE
  6. ADVIL [Concomitant]
     Active Substance: IBUPROFEN
  7. VICKS NYQUIL [Concomitant]
     Active Substance: ACETAMINOPHEN\DEXTROMETHORPHAN HYDROBROMIDE\DOXYLAMINE SUCCINATE
  8. MIRALAX [Concomitant]
     Active Substance: POLYETHYLENE GLYCOL 3350
  9. PROAIR HFA [Concomitant]
     Active Substance: ALBUTEROL SULFATE
  10. OMEPRAZOLE 20 MG [Suspect]
     Active Substance: OMEPRAZOLE
     Indication: NAUSEA
     Dosage: 6-9 MONTHS
     Route: 048

REACTIONS (2)
  - Dyspepsia [None]
  - Ventricular extrasystoles [None]

NARRATIVE: CASE EVENT DATE: 20150821
